FAERS Safety Report 7880739 (Version 3)
Quarter: 2012Q4

REPORT INFORMATION
  Report Type: Report from Study
  Country: FR (occurrence: FR)
  Receive Date: 20110331
  Receipt Date: 20120927
  Transmission Date: 20130627
  Serious: Yes (Hospitalization, Other)
  Sender: FDA-Public Use
  Company Number: PHHO2011FR00754

PATIENT
  Age: 68 Year
  Sex: Female
  Weight: 58 kg

DRUGS (9)
  1. RAD 666 / RAD 001A [Suspect]
     Indication: RENAL TRANSPLANT
     Dosage: 0.5 mg 10 times a day
     Route: 048
     Dates: start: 20101015, end: 20101221
  2. CELLCEPT [Suspect]
     Indication: RENAL TRANSPLANT
     Dosage: 500 mg, TID
     Route: 048
     Dates: start: 20100905
  3. CORTANCYL [Suspect]
     Indication: RENAL TRANSPLANT
     Dosage: 5 mg, BID
     Route: 048
     Dates: start: 20100906, end: 20101221
  4. INIPOMP [Concomitant]
     Dosage: UNK
  5. BACTRIM [Concomitant]
     Dosage: UNK
     Dates: end: 20101123
  6. ROVALCYTE [Concomitant]
     Dosage: UNK
  7. TENORMINE [Concomitant]
     Dosage: UNK
  8. PHOSPHONEUROS [Concomitant]
     Dosage: UNK
     Dates: end: 20101126
  9. EPREX [Concomitant]

REACTIONS (4)
  - Kidney transplant rejection [Recovered/Resolved]
  - Neutropenia [Unknown]
  - Anaemia [Recovering/Resolving]
  - Diabetes mellitus [Recovering/Resolving]
